FAERS Safety Report 9832721 (Version 1)
Quarter: 2014Q1

REPORT INFORMATION
  Report Type: Spontaneous
  Country: US (occurrence: US)
  Receive Date: 20140121
  Receipt Date: 20140121
  Transmission Date: 20141002
  Serious: Yes (Hospitalization)
  Sender: FDA-Public Use
  Company Number: US-PFIZER INC-2014012585

PATIENT
  Sex: Male

DRUGS (1)
  1. FLAGYL [Suspect]
     Indication: DIARRHOEA
     Dosage: UNK

REACTIONS (4)
  - Convulsion [Recovered/Resolved]
  - Cerebrovascular accident [Recovered/Resolved]
  - Myocardial infarction [Recovered/Resolved]
  - Blood potassium increased [Recovered/Resolved]
